FAERS Safety Report 5158525-X (Version None)
Quarter: 2006Q4

REPORT INFORMATION
  Report Type: 
  Country: None (occurrence: None)
  Receive Date: 20061117
  Receipt Date: 20050620
  Transmission Date: 20070319
  Serious: Yes (Hospitalization)
  Sender: FDA-Public Use
  Company Number: J081-002-001865

PATIENT
  Age: 87 Year
  Sex: Female
  Weight: 52 kg

DRUGS (3)
  1. ARICEPT [Suspect]
     Indication: DEMENTIA ALZHEIMER'S TYPE
     Dosage: 5 MG, 1 IN 1 D, ORAL  SINCE 3 YEARS AGO
     Route: 048
     Dates: end: 20050207
  2. NORVASC [Concomitant]
  3. ALFAROL                            (ALFACALCIDOL) [Concomitant]

REACTIONS (4)
  - ELECTROCARDIOGRAM QT PROLONGED [None]
  - LOSS OF CONSCIOUSNESS [None]
  - SYNCOPE [None]
  - TORSADE DE POINTES [None]
